FAERS Safety Report 5662391-3 (Version None)
Quarter: 2008Q1

REPORT INFORMATION
  Report Type: 
  Country: None (occurrence: None)
  Receive Date: 20080310
  Receipt Date: 20080228
  Transmission Date: 20080703
  Serious: Yes (Hospitalization)
  Sender: FDA-Public Use
  Company Number: 20084774

PATIENT
  Age: 16 Year
  Sex: Male

DRUGS (1)
  1. LIORESAL [Suspect]
     Indication: MUSCLE SPASTICITY
     Dosage: 770 MCG, DAILY, INTRATHECAL
     Route: 037

REACTIONS (6)
  - HYPERHIDROSIS [None]
  - INFECTION [None]
  - INSOMNIA [None]
  - MUSCLE SPASTICITY [None]
  - TREMOR [None]
  - WITHDRAWAL SYNDROME [None]
